FAERS Safety Report 6716643-6 (Version None)
Quarter: 2010Q2

REPORT INFORMATION
  Report Type: 
  Country: None (occurrence: None)
  Receive Date: 20100507
  Receipt Date: 20100430
  Transmission Date: 20101027
  Serious: Yes (Other)
  Sender: FDA-Public Use
  Company Number: BR-ABBOTT-10P-020-0641842-00

PATIENT
  Sex: Female
  Weight: 65 kg

DRUGS (5)
  1. HUMIRA [Suspect]
     Indication: RHEUMATOID ARTHRITIS
     Route: 058
     Dates: start: 20081106, end: 20100301
  2. HUMIRA [Suspect]
     Route: 058
     Dates: start: 20100427
  3. METHOTREXATE 15MG + FOLIC ACID 20MG [Concomitant]
     Indication: RHEUMATOID ARTHRITIS
     Route: 048
  4. CYCLOBENZAPRINE 5MG + PREDNISONE 5MG + FAMOTIDINE 30MG [Concomitant]
     Indication: RHEUMATOID ARTHRITIS
     Route: 048
  5. ABLOK PLUS [Concomitant]
     Indication: HYPERTENSION
     Route: 048

REACTIONS (4)
  - BLOOD PRESSURE FLUCTUATION [None]
  - CAROTID ARTERIOSCLEROSIS [None]
  - COUGH [None]
  - DIABETES MELLITUS [None]
